FAERS Safety Report 12503877 (Version 2)
Quarter: 2016Q3

REPORT INFORMATION
  Report Type: Spontaneous
  Country: JP (occurrence: JP)
  Receive Date: 20160628
  Receipt Date: 20160722
  Transmission Date: 20161109
  Serious: Yes (Death, Other)
  Sender: FDA-Public Use
  Company Number: PHJP2016JP018082

PATIENT
  Age: 45 Year
  Sex: Female

DRUGS (2)
  1. AFINITOR [Suspect]
     Active Substance: EVEROLIMUS
     Indication: BREAST CANCER RECURRENT
     Dosage: 10 MG, UNK
     Route: 048
  2. EXEMESTANE. [Concomitant]
     Active Substance: EXEMESTANE
     Indication: BREAST CANCER RECURRENT
     Dosage: 25 MG, UNK
     Route: 065

REACTIONS (2)
  - Death [Fatal]
  - Renal failure [Unknown]
